FAERS Safety Report 6913807-3 (Version None)
Quarter: 2010Q3

REPORT INFORMATION
  Report Type: 
  Country: None (occurrence: None)
  Receive Date: 20100809
  Receipt Date: 20100729
  Transmission Date: 20110219
  Serious: Yes (Hospitalization)
  Sender: FDA-Public Use
  Company Number: US-ROCHE-718890

PATIENT
  Age: 79 Year
  Sex: Female

DRUGS (17)
  1. OSELTAMIVIR [Suspect]
     Indication: H1N1 INFLUENZA
     Route: 065
  2. SOTALOL HCL [Suspect]
     Indication: ATRIAL FIBRILLATION
     Route: 065
  3. ASPIRIN [Concomitant]
  4. WARFARIN [Concomitant]
  5. WARFARIN [Concomitant]
  6. LISINOPRIL [Concomitant]
  7. FUROSEMIDE [Concomitant]
  8. POTASSIUM CHLORIDE [Concomitant]
  9. CALCIUM [Concomitant]
  10. LECITHIN [Concomitant]
  11. GLUCOSAMINE [Concomitant]
  12. CEFTRIAXONE [Concomitant]
  13. VANCOMYCIN [Concomitant]
  14. CEFEPIME [Concomitant]
  15. DOXYCYCLINE [Concomitant]
  16. FAMOTIDINE [Concomitant]
  17. ONDANSETRON [Concomitant]
     Dosage: RECEIVED SEVEN DOSES
     Route: 042

REACTIONS (2)
  - GASTROINTESTINAL HAEMORRHAGE [None]
  - TORSADE DE POINTES [None]
